FAERS Safety Report 6894668-8 (Version None)
Quarter: 2010Q3

REPORT INFORMATION
  Report Type: 
  Country: None (occurrence: None)
  Receive Date: 20100727
  Receipt Date: 20100709
  Transmission Date: 20110219
  Serious: Yes (Hospitalization)
  Sender: FDA-Public Use
  Company Number: 2010-2423

PATIENT
  Age: 72 Year
  Sex: Male
  Weight: 87 kg

DRUGS (3)
  1. LANREOTIDE AUTOGEL (LANREOTIDE) (LANREOTIDE ACETATE) [Suspect]
     Indication: ACROMEGALY
     Dosage: 120MG (120 MG, 1 IN 6 WK), SUBCUTANEOUS
     Route: 058
     Dates: start: 20100209, end: 20100615
  2. NISOLONE (PREDNISOLONE) [Concomitant]
  3. SYNTHYROXINE (LEVOTHYROXINE SODIUM) [Concomitant]

REACTIONS (8)
  - BLOOD CHLORIDE DECREASED [None]
  - BLOOD POTASSIUM DECREASED [None]
  - BLOOD THYROID STIMULATING HORMONE DECREASED [None]
  - DIARRHOEA [None]
  - HYPONATRAEMIA [None]
  - INSULIN-LIKE GROWTH FACTOR DECREASED [None]
  - NAUSEA [None]
  - VOMITING [None]
